FAERS Safety Report 5155170-7 (Version None)
Quarter: 2006Q4

REPORT INFORMATION
  Report Type: 
  Country: None (occurrence: None)
  Receive Date: 20061121
  Receipt Date: 20061109
  Transmission Date: 20070319
  Serious: Yes (Hospitalization, Other)
  Sender: FDA-Public Use
  Company Number: US-ELI_LILLY_AND_COMPANY-US200611002550

PATIENT
  Age: 76 Year
  Sex: Female

DRUGS (4)
  1. FORTEO [Suspect]
     Indication: OSTEOPOROSIS
     Dosage: UNK, UNK
     Dates: start: 20060701, end: 20061101
  2. HYZAAR [Concomitant]
     Indication: BLOOD PRESSURE
  3. TOPRAL [Concomitant]
     Indication: BLOOD PRESSURE
  4. ASPIRIN [Concomitant]
     Dosage: 81 MG, UNK

REACTIONS (5)
  - BONE NEOPLASM MALIGNANT [None]
  - FULL BLOOD COUNT DECREASED [None]
  - MULTIPLE MYELOMA [None]
  - PHARMACEUTICAL PRODUCT COMPLAINT [None]
  - SPINAL FRACTURE [None]
